FAERS Safety Report 7973037-3 (Version None)
Quarter: 2011Q4

REPORT INFORMATION
  Report Type: 
  Country: None (occurrence: None)
  Receive Date: 20111213
  Receipt Date: 20111209
  Transmission Date: 20120403
  Serious: Yes (Other)
  Sender: FDA-Public Use
  Company Number: US-PFIZER INC-2011180058

PATIENT
  Sex: Male

DRUGS (2)
  1. OXYBUTYNIN [Suspect]
  2. TOVIAZ [Suspect]
     Dosage: 4 MG, UNK
     Dates: start: 20110727

REACTIONS (3)
  - DYSURIA [None]
  - BLADDER SPASM [None]
  - CYSTITIS [None]
